FAERS Safety Report 7988734-3 (Version None)
Quarter: 2011Q4

REPORT INFORMATION
  Report Type: 
  Country: None (occurrence: None)
  Receive Date: 20111219
  Receipt Date: 20111207
  Transmission Date: 20120403
  Serious: Yes (Hospitalization)
  Sender: FDA-Public Use
  Company Number: US-BIOGENIDEC-2010BI040492

PATIENT
  Age: 36 Year
  Sex: Female

DRUGS (6)
  1. NAPROXEN (ALEVE) [Concomitant]
     Indication: ARTHRITIS
     Route: 048
     Dates: start: 19900101
  2. IBUPROFEN (ADVIL) [Concomitant]
     Indication: ARTHRITIS
     Route: 048
     Dates: start: 19900101
  3. SYNTHROID [Concomitant]
     Indication: HYPOTHYROIDISM
     Route: 048
     Dates: start: 20070101
  4. NAPROXEN [Concomitant]
     Indication: ARTHRALGIA
     Route: 048
  5. BACLOFEN [Concomitant]
     Indication: MUSCLE SPASTICITY
     Dates: start: 20100301
  6. TYSABRI [Suspect]
     Indication: MULTIPLE SCLEROSIS
     Route: 042
     Dates: start: 20100721

REACTIONS (7)
  - DEVICE KINK [None]
  - DEVICE BREAKAGE [None]
  - SCAR [None]
  - DEVICE DISLOCATION [None]
  - PAIN [None]
  - ARTHRALGIA [None]
  - MUSCLE SPASTICITY [None]
